FAERS Safety Report 4353010-7 (Version None)
Quarter: 2004Q2

REPORT INFORMATION
  Report Type: 
  Country: None (occurrence: None)
  Receive Date: 20040430
  Receipt Date: 20040113
  Transmission Date: 20050107
  Serious: No
  Sender: FDA-Public Use
  Company Number: 204174

PATIENT
  Sex: Male

DRUGS (2)
  1. XOLAIR [Suspect]
     Indication: DRUG USE FOR UNKNOWN INDICATION
     Dosage: 150 MG, SUBCUTANEOUS
     Route: 058
     Dates: start: 20040106
  2. LIPITOR [Concomitant]

REACTIONS (1)
  - PAIN IN EXTREMITY [None]
